FAERS Safety Report 6722573-6 (Version None)
Quarter: 2010Q2

REPORT INFORMATION
  Report Type: 
  Country: None (occurrence: None)
  Receive Date: 20100512
  Receipt Date: 20100430
  Transmission Date: 20101027
  Serious: Yes (Other)
  Sender: FDA-Public Use
  Company Number: NO-PFIZER INC-2010055185

PATIENT
  Sex: Male

DRUGS (2)
  1. LYRICA [Suspect]
  2. METHADONE [Suspect]
     Indication: DRUG DEPENDENCE
     Dosage: UNK

REACTIONS (2)
  - DRUG INTERACTION [None]
  - DRUG TOXICITY [None]
